FAERS Safety Report 4931293-X (Version None)
Quarter: 2006Q1

REPORT INFORMATION
  Report Type: 
  Country: None (occurrence: None)
  Receive Date: 20060302
  Receipt Date: 20030605
  Transmission Date: 20060701
  Serious: Yes (Hospitalization)
  Sender: FDA-Public Use
  Company Number: US-MERCK-0306USA00875

PATIENT
  Age: 42 Year
  Sex: Female
  Weight: 98 kg

DRUGS (17)
  1. VIOXX [Suspect]
     Indication: ARTHRALGIA
     Route: 048
     Dates: start: 20010108, end: 20010101
  2. VIOXX [Suspect]
     Indication: ARTHRITIS
     Route: 048
     Dates: start: 20010108, end: 20010101
  3. ZOLOFT [Concomitant]
     Route: 048
     Dates: start: 20001027
  4. DEPAKOTE [Concomitant]
     Route: 048
     Dates: start: 20011027
  5. DEPAKOTE [Concomitant]
     Route: 048
     Dates: start: 20011027
  6. DEPAKOTE [Concomitant]
     Route: 048
     Dates: start: 20011027
  7. HUMIBID DM [Concomitant]
     Route: 048
     Dates: start: 20010108
  8. SEPTRA DS [Concomitant]
     Route: 048
     Dates: start: 20010108
  9. NYSTATIN [Concomitant]
     Route: 061
     Dates: start: 20010108
  10. CLONIDINE HYDROCHLORIDE [Concomitant]
     Route: 048
     Dates: start: 20001027
  11. TAGAMET [Concomitant]
     Route: 048
     Dates: start: 20000508
  12. BENZTROPINE MESYLATE [Concomitant]
     Route: 048
     Dates: start: 20000508
  13. HALDOL [Concomitant]
     Route: 048
     Dates: start: 20001027
  14. AMBIEN [Concomitant]
     Route: 048
     Dates: start: 20001027
  15. LASIX [Concomitant]
     Route: 048
     Dates: start: 20000508
  16. COLACE [Concomitant]
     Route: 048
     Dates: start: 20010111
  17. GUAIFENEX PSE [Concomitant]
     Route: 065
     Dates: start: 20001222

REACTIONS (53)
  - ABDOMINAL DISTENSION [None]
  - ABDOMINAL PAIN [None]
  - ADVERSE EVENT [None]
  - ANAEMIA [None]
  - ANXIETY [None]
  - ARTHRALGIA [None]
  - ASTHMA [None]
  - BACK PAIN [None]
  - BRONCHITIS ACUTE [None]
  - CARDIOMEGALY [None]
  - CHEST DISCOMFORT [None]
  - CHEST PAIN [None]
  - CHEST X-RAY ABNORMAL [None]
  - CHOKING [None]
  - CHROMATURIA [None]
  - CONSTIPATION [None]
  - DIZZINESS [None]
  - DYSPEPSIA [None]
  - DYSPHAGIA [None]
  - DYSPNOEA [None]
  - DYSTONIA [None]
  - GASTROOESOPHAGEAL REFLUX DISEASE [None]
  - HAND FRACTURE [None]
  - HEADACHE [None]
  - HIATUS HERNIA [None]
  - HYPERHIDROSIS [None]
  - HYPERTENSION [None]
  - INJURY [None]
  - INSOMNIA [None]
  - IRRITABILITY [None]
  - MUSCLE SPASMS [None]
  - NASAL CONGESTION [None]
  - NERVOUSNESS [None]
  - NEUROMYOPATHY [None]
  - ODYNOPHAGIA [None]
  - OESOPHAGITIS [None]
  - PLEURISY [None]
  - POSTNASAL DRIP [None]
  - RASH GENERALISED [None]
  - RETCHING [None]
  - RHINITIS ALLERGIC [None]
  - RHINORRHOEA [None]
  - SNEEZING [None]
  - SPEECH DISORDER [None]
  - STRESS [None]
  - SWELLING [None]
  - TACHYCARDIA [None]
  - THROAT IRRITATION [None]
  - UPPER RESPIRATORY TRACT INFECTION [None]
  - VAGINAL DISCHARGE [None]
  - VAGINAL ODOUR [None]
  - VISION BLURRED [None]
  - WEIGHT DECREASED [None]
